FAERS Safety Report 14427127 (Version 1)
Quarter: 2018Q1

REPORT INFORMATION
  Report Type: Spontaneous
  Country: US (occurrence: US)
  Receive Date: 20180123
  Receipt Date: 20180123
  Transmission Date: 20180509
  Serious: No
  Sender: FDA-Public Use
  Company Number: US-IMPAX LABORATORIES, INC-2017-IPXL-03025

PATIENT
  Age: 39 Year
  Sex: Male

DRUGS (1)
  1. RYTARY [Suspect]
     Active Substance: CARBIDOPA\LEVODOPA
     Indication: PARKINSON^S DISEASE
     Dosage: 36.25/145 MG, 2 CAPSULES PER DAY AND 61.25/245 MG, 9 CAPSULES PER DAY
     Route: 065

REACTIONS (5)
  - Drug effect variable [Unknown]
  - Drug dispensing error [Unknown]
  - Balance disorder [Unknown]
  - Dizziness [Unknown]
  - Prescribed overdose [Unknown]
